FAERS Safety Report 7308517-7 (Version None)
Quarter: 2011Q1

REPORT INFORMATION
  Report Type: 
  Country: None (occurrence: None)
  Receive Date: 20110210
  Receipt Date: 20110127
  Transmission Date: 20110831
  Serious: Yes (Hospitalization)
  Sender: FDA-Public Use
  Company Number: 2011000415

PATIENT
  Age: 95 Year
  Sex: Female
  Weight: 39.9165 kg

DRUGS (1)
  1. TARCEVA [Suspect]
     Indication: TRACHEAL CANCER
     Dosage: (100 MG,DAILY),ORAL
     Route: 048
     Dates: start: 20100226

REACTIONS (1)
  - FLUID RETENTION [None]
